FAERS Safety Report 10716277 (Version 1)
Quarter: 2015Q1

REPORT INFORMATION
  Report Type: Spontaneous
  Country: US (occurrence: US)
  Receive Date: 20150116
  Receipt Date: 20150116
  Transmission Date: 20150721
  Serious: Yes (Hospitalization)
  Sender: FDA-Public Use
  Company Number: US-SA-2015SA003246

PATIENT
  Age: 59 Year
  Sex: Male
  Weight: 79 kg

DRUGS (21)
  1. LOVENOX [Suspect]
     Active Substance: ENOXAPARIN SODIUM
     Indication: DEEP VEIN THROMBOSIS
     Route: 058
     Dates: start: 20130901, end: 201411
  2. DOXYCYCLINE. [Concomitant]
     Active Substance: DOXYCYCLINE
  3. CLARITIN [Concomitant]
     Active Substance: LORATADINE
     Dates: start: 20140711
  4. ASTELIN [Concomitant]
     Active Substance: AZELASTINE HYDROCHLORIDE
     Dates: start: 20140711
  5. BISACODYL. [Concomitant]
     Active Substance: BISACODYL
  6. LOVENOX [Suspect]
     Active Substance: ENOXAPARIN SODIUM
     Indication: PULMONARY EMBOLISM
     Route: 058
     Dates: start: 20141119, end: 20141122
  7. AVASTIN [Concomitant]
     Active Substance: BEVACIZUMAB
     Indication: NON-SMALL CELL LUNG CANCER
     Dates: start: 20140411, end: 20141024
  8. FLOVENT [Concomitant]
     Active Substance: FLUTICASONE PROPIONATE
     Dates: start: 20130101
  9. FLONASE [Concomitant]
     Active Substance: FLUTICASONE PROPIONATE
     Dates: start: 20140711
  10. LOVENOX [Suspect]
     Active Substance: ENOXAPARIN SODIUM
     Indication: DEEP VEIN THROMBOSIS
     Route: 058
     Dates: start: 20141119, end: 20141122
  11. LOVENOX [Suspect]
     Active Substance: ENOXAPARIN SODIUM
     Indication: PULMONARY EMBOLISM
     Route: 058
     Dates: start: 20130901, end: 201411
  12. TARCEVA [Concomitant]
     Active Substance: ERLOTINIB HYDROCHLORIDE
     Indication: NON-SMALL CELL LUNG CANCER
     Dates: start: 20131020, end: 20141109
  13. ALIMTA [Concomitant]
     Active Substance: PEMETREXED DISODIUM
     Indication: NON-SMALL CELL LUNG CANCER
     Dates: start: 20140411, end: 20141024
  14. VENTOLINE [Concomitant]
     Active Substance: ALBUTEROL
     Dates: start: 20130101
  15. DIPROPHYLLINE [Concomitant]
     Active Substance: DYPHYLLINE
  16. COMPAZINE [Concomitant]
     Active Substance: PROCHLORPERAZINE MALEATE
     Dates: start: 20141119
  17. ATROVENT [Concomitant]
     Active Substance: IPRATROPIUM BROMIDE
  18. VITAMINS NOS [Concomitant]
     Active Substance: VITAMINS
     Dates: start: 20140401
  19. ZANTAC [Concomitant]
     Active Substance: RANITIDINE HYDROCHLORIDE
     Dates: start: 20140401
  20. CALCIUM [Concomitant]
     Active Substance: CALCIUM
     Dates: start: 20140401
  21. MOMETASONE FUROATE. [Concomitant]
     Active Substance: MOMETASONE FUROATE

REACTIONS (6)
  - Aphasia [Recovered/Resolved]
  - Dysarthria [Recovered/Resolved]
  - Anaemia [Recovered/Resolved]
  - Vomiting [Recovered/Resolved]
  - Retroperitoneal haemorrhage [Recovered/Resolved]
  - Abdominal pain [Recovered/Resolved]

NARRATIVE: CASE EVENT DATE: 20141110
